FAERS Safety Report 5805421-8 (Version None)
Quarter: 2008Q3

REPORT INFORMATION
  Report Type: 
  Country: None (occurrence: None)
  Receive Date: 20080708
  Receipt Date: 20080708
  Transmission Date: 20090109
  Serious: Yes (Life-Threatening, Hospitalization, Other)
  Sender: FDA-Public Use
  Company Number: None

PATIENT
  Age: 67 Year
  Sex: Male
  Weight: 103.4201 kg

DRUGS (2)
  1. DIGITEX .250 MICS [Suspect]
     Indication: ATRIAL FLUTTER
     Dates: start: 20070401, end: 20080304
  2. DIGITEX .250 MICS [Suspect]
     Indication: CARDIAC FAILURE
     Dates: start: 20070401, end: 20080304

REACTIONS (2)
  - APPARENT DEATH [None]
  - ATRIOVENTRICULAR BLOCK COMPLETE [None]
